FAERS Safety Report 7388879-5 (Version None)
Quarter: 2011Q2

REPORT INFORMATION
  Report Type: 
  Country: None (occurrence: None)
  Receive Date: 20110401
  Receipt Date: 20081017
  Transmission Date: 20111010
  Serious: Yes (Hospitalization, Other)
  Sender: FDA-Public Use
  Company Number: US-BAYER-200836321NA

PATIENT
  Sex: Male
  Weight: 92 kg

DRUGS (32)
  1. COUMADIN [Concomitant]
     Dosage: 2 MG, UNK
     Route: 048
  2. LISINOPRIL [Concomitant]
     Dosage: 40 MG, UNK
  3. K-DUR [Concomitant]
     Dosage: 20 MEQ, UNK
     Route: 048
  4. NOREPINEPHRINE BITARTRATE [Concomitant]
     Dosage: UNK
     Route: 042
     Dates: start: 20040209
  5. LOVENOX [Concomitant]
     Dosage: 80 UNK, UNK
     Route: 058
  6. MIDAZOLAM [Concomitant]
     Dosage: MULTIPLE DOSES
     Route: 042
     Dates: start: 20040209
  7. FORANE [Concomitant]
     Dosage: VARIABLE AMOUNTS
     Dates: start: 20040209
  8. NORVASC [Concomitant]
     Dosage: 10 MG, UNK
     Route: 048
  9. SUFENTANIL CITRATE [Concomitant]
     Dosage: MULTIPLE DOSES
     Route: 042
     Dates: start: 20040209
  10. FUROSEMIDUM [FUROSEMIDE] [Concomitant]
     Dosage: 20 MG, UNK
  11. ATENOLOL [Concomitant]
     Dosage: 25 MG, UNK
     Route: 048
  12. DEMEROL [Concomitant]
     Dosage: 25 MG, UNK
     Route: 042
     Dates: start: 20040205
  13. ADVIL [IBUPROFEN] [Concomitant]
     Dosage: 200 MG, UNK
     Route: 048
  14. TEMAZEPAM [Concomitant]
     Dosage: 15 MG, UNK
     Route: 048
  15. VICODIN [Concomitant]
     Dosage: 2 TABS
     Route: 048
  16. HEPARIN SODIUM [Concomitant]
     Dosage: 10000 U, PUMP PRIME
     Route: 042
     Dates: start: 20040209
  17. CEFAZOLIN [Concomitant]
     Dosage: 2
     Route: 042
     Dates: start: 20040209
  18. PAPAVERINE [PAPAVERINE] [Concomitant]
     Dosage: UNK
     Route: 042
     Dates: start: 20040209
  19. EPHEDRINE SUL CAP [Concomitant]
     Dosage: UNK
     Dates: start: 20040209
  20. LIDOCAINE [Concomitant]
     Dosage: 100 MG, UNK
     Route: 042
     Dates: start: 20040209
  21. PANCURONIUM BROMIDE [Concomitant]
     Dosage: MULTIPLE DOSES
     Route: 042
     Dates: start: 20040209
  22. PROTAMINE SULFATE [Concomitant]
     Dosage: UNK
     Route: 042
     Dates: start: 20040209
  23. TRASYLOL [Suspect]
     Indication: AORTIC VALVE REPLACEMENT
  24. FLOMAX [Concomitant]
     Dosage: 0.4 MG, UNK
     Route: 048
  25. AMIODARONE [Concomitant]
     Dosage: 200 MG, UNK
     Route: 048
  26. ATORVASTATIN CALCIUM [Concomitant]
     Dosage: 10 MG, UNK
     Route: 048
  27. TRASYLOL [Suspect]
     Indication: CORONARY ARTERY BYPASS
     Dosage: 201 ML - 1 ML TEST DOSE; 200 ML PUMP PRIME
     Route: 042
     Dates: start: 20040209, end: 20040209
  28. HYDROCHLOROTHIAZIDE [Concomitant]
     Dosage: 25 MG, UNK
     Route: 048
  29. DOPAMINE HCL [Concomitant]
     Dosage: UNK
     Route: 042
     Dates: start: 20040209
  30. VYTORIN [Concomitant]
  31. PHENYLEPHRINE [PHENYLEPHRINE] [Concomitant]
     Dosage: UNK
     Route: 042
     Dates: start: 20040209
  32. OMNIPAQUE 140 [Concomitant]
     Dosage: 125 ML, UNK

REACTIONS (11)
  - EMOTIONAL DISTRESS [None]
  - ANHEDONIA [None]
  - INJURY [None]
  - UNEVALUABLE EVENT [None]
  - PAIN [None]
  - FEAR [None]
  - RENAL FAILURE [None]
  - ANXIETY [None]
  - STRESS [None]
  - RENAL IMPAIRMENT [None]
  - RENAL INJURY [None]
